FAERS Safety Report 5031115-5 (Version None)
Quarter: 2006Q2

REPORT INFORMATION
  Report Type: 
  Country: None (occurrence: None)
  Receive Date: 20060619
  Receipt Date: 20060619
  Transmission Date: 20061013
  Serious: Yes (Hospitalization)
  Sender: FDA-Public Use
  Company Number: None

PATIENT
  Sex: Male
  Weight: 15.4223 kg

DRUGS (5)
  1. DIASTAT ACUDIAL [Suspect]
     Indication: CONVULSION
     Dosage: 10 MG
     Route: 054
  2. TOPAMAX [Concomitant]
  3. ATIVAN [Concomitant]
  4. DEPAKOTE [Concomitant]
  5. TRILEPTAL [Concomitant]

REACTIONS (4)
  - AGGRESSION [None]
  - ANGER [None]
  - CONVULSION [None]
  - SCREAMING [None]
